FAERS Safety Report 6588882-9 (Version None)
Quarter: 2010Q1

REPORT INFORMATION
  Report Type: 
  Country: None (occurrence: None)
  Receive Date: 20100218
  Receipt Date: 20100209
  Transmission Date: 20100710
  Serious: Yes (Hospitalization)
  Sender: FDA-Public Use
  Company Number: B0632152A

PATIENT
  Age: 72 Year
  Sex: Male

DRUGS (14)
  1. RANITIDINE HCL [Suspect]
     Indication: DRUG USE FOR UNKNOWN INDICATION
     Dosage: 75MG TWICE PER DAY
     Route: 048
     Dates: end: 20100113
  2. VANCOMYCIN HCL [Suspect]
     Indication: DRUG USE FOR UNKNOWN INDICATION
     Dosage: 2G PER DAY
     Route: 042
     Dates: start: 20091225, end: 20100112
  3. CIPROFLOXACIN HCL [Suspect]
     Indication: DRUG USE FOR UNKNOWN INDICATION
     Dosage: 750MG PER DAY
     Route: 042
     Dates: start: 20091225, end: 20100112
  4. ATACAND [Suspect]
     Indication: DRUG USE FOR UNKNOWN INDICATION
     Route: 048
     Dates: start: 20091222, end: 20100113
  5. NEURONTIN [Suspect]
     Indication: DRUG USE FOR UNKNOWN INDICATION
     Dosage: 600MG THREE TIMES PER DAY
     Route: 048
     Dates: end: 20100113
  6. LYRICA [Suspect]
     Indication: DRUG USE FOR UNKNOWN INDICATION
     Dosage: 75MG TWICE PER DAY
     Route: 048
     Dates: end: 20100113
  7. ESIDRIX [Concomitant]
     Indication: DRUG USE FOR UNKNOWN INDICATION
     Dosage: 25MG PER DAY
     Route: 065
  8. NEBIVOLOL [Concomitant]
     Indication: DRUG USE FOR UNKNOWN INDICATION
     Dosage: 5MG PER DAY
     Route: 065
  9. FUMAFER [Concomitant]
     Indication: DRUG USE FOR UNKNOWN INDICATION
     Route: 065
  10. KARDEGIC [Concomitant]
     Indication: DRUG USE FOR UNKNOWN INDICATION
     Route: 065
  11. LANTUS [Concomitant]
     Indication: DRUG USE FOR UNKNOWN INDICATION
     Dosage: 30UNIT PER DAY
     Route: 065
  12. VASTEN [Concomitant]
     Indication: DRUG USE FOR UNKNOWN INDICATION
     Route: 065
  13. CORDARONE [Concomitant]
     Indication: DRUG USE FOR UNKNOWN INDICATION
     Dosage: 200MG PER DAY
     Route: 065
  14. TAZOCILLINE [Concomitant]
     Dosage: 4G THREE TIMES PER DAY
     Route: 065
     Dates: start: 20091224, end: 20100104

REACTIONS (5)
  - ANURIA [None]
  - CONFUSIONAL STATE [None]
  - DISORIENTATION [None]
  - EXTRAPYRAMIDAL DISORDER [None]
  - RENAL FAILURE [None]
